FAERS Safety Report 4721460-2 (Version None)
Quarter: 2005Q3

REPORT INFORMATION
  Report Type: 
  Country: None (occurrence: None)
  Receive Date: 20050721
  Receipt Date: 20040922
  Transmission Date: 20060218
  Serious: No
  Sender: FDA-Public Use
  Company Number: US-BRISTOL-MYERS SQUIBB COMPANY-12709622

PATIENT
  Age: 76 Year
  Sex: Male
  Weight: 87 kg

DRUGS (10)
  1. COUMADIN [Suspect]
     Indication: AORTIC VALVE REPLACEMENT
     Dosage: 7.5MG INITIATED JUN-1992; DOSAGE VARIES; 7.5MG TO 9.25MG DAILY
     Dates: start: 19920601
  2. COUMADIN [Suspect]
     Indication: ANEURYSM
     Dosage: 7.5MG INITIATED JUN-1992; DOSAGE VARIES; 7.5MG TO 9.25MG DAILY
     Dates: start: 19920601
  3. LOVENOX [Suspect]
     Indication: INTERNATIONAL NORMALISED RATIO DECREASED
     Dosage: 2 TIMES DAILY; LEAST 25 INJECTIONS IN PAST 3 MONTHS
  4. LEXAPRO [Concomitant]
     Dates: start: 19920101
  5. TOPROL-XL [Concomitant]
     Dates: start: 19920101
  6. AGGRENOX [Concomitant]
     Dates: start: 19920101
  7. NEXIUM [Concomitant]
     Dates: start: 19920101
  8. ZETIA [Concomitant]
     Dates: start: 19920101
  9. PROSCAR [Concomitant]
     Dates: start: 19920101
  10. NIASPAN [Concomitant]
     Dosage: DAILY FOR 1 YEAR

REACTIONS (2)
  - INTERNATIONAL NORMALISED RATIO FLUCTUATION [None]
  - PROTHROMBIN TIME ABNORMAL [None]
